FAERS Safety Report 13282992 (Version 2)
Quarter: 2017Q2

REPORT INFORMATION
  Report Type: Spontaneous
  Country: US (occurrence: US)
  Receive Date: 20170301
  Receipt Date: 20170523
  Transmission Date: 20170830
  Serious: Yes (Hospitalization)
  Sender: FDA-Public Use
  Company Number: US-009507513-1703USA000180

PATIENT
  Age: 71 Year
  Sex: Male
  Weight: 107.48 kg

DRUGS (1)
  1. JANUVIA [Suspect]
     Active Substance: SITAGLIPTIN PHOSPHATE
     Indication: DIABETES MELLITUS
     Dosage: 1 TABLET, ONCE A DAY
     Route: 048
     Dates: end: 20160422

REACTIONS (6)
  - Pain [Recovering/Resolving]
  - Pneumonia [Recovering/Resolving]
  - Renal disorder [Recovering/Resolving]
  - Myalgia [Recovering/Resolving]
  - Renal cancer [Recovering/Resolving]
  - Vomiting [Recovering/Resolving]

NARRATIVE: CASE EVENT DATE: 20160422
